FAERS Safety Report 21459752 (Version 1)
Quarter: 2022Q4

REPORT INFORMATION
  Report Type: Spontaneous
  Country: DE (occurrence: DE)
  Receive Date: 20221014
  Receipt Date: 20221014
  Transmission Date: 20230113
  Serious: Yes (Other)
  Sender: FDA-Public Use
  Company Number: DE-ROCHE-3191358

PATIENT
  Age: 38 Year
  Sex: Female

DRUGS (5)
  1. PACLITAXEL [Suspect]
     Active Substance: PACLITAXEL
     Indication: Product used for unknown indication
     Route: 065
  2. HERCEPTIN [Suspect]
     Active Substance: TRASTUZUMAB
     Indication: HER2 positive breast cancer
     Route: 065
     Dates: start: 2011
  3. PERJETA [Suspect]
     Active Substance: PERTUZUMAB
     Indication: Product used for unknown indication
     Route: 065
  4. KADCYLA [Suspect]
     Active Substance: ADO-TRASTUZUMAB EMTANSINE
     Indication: Product used for unknown indication
     Route: 065
  5. AVASTIN [Suspect]
     Active Substance: BEVACIZUMAB
     Indication: Triple negative breast cancer
     Route: 065

REACTIONS (11)
  - Cardiac failure [None]
  - Coma [Recovered/Resolved]
  - Bone disorder [None]
  - Breast cancer [None]
  - Metastases to spine [None]
  - Metastases to bone [None]
  - Metastases to spine [None]
  - Metastases to central nervous system [None]
  - Malignant neoplasm progression [None]
  - Metastases to meninges [None]
  - Ejection fraction decreased [None]

NARRATIVE: CASE EVENT DATE: 20160101
